FAERS Safety Report 12959758 (Version 1)
Quarter: 2016Q4

REPORT INFORMATION
  Report Type: Report from Study
  Country: US (occurrence: US)
  Receive Date: 20161121
  Receipt Date: 20161121
  Transmission Date: 20170207
  Serious: Yes (Hospitalization)
  Sender: FDA-Public Use
  Company Number: US-JNJFOC-20161002869

PATIENT
  Age: 79 Year
  Sex: Male
  Weight: 83.5 kg

DRUGS (13)
  1. PREDNISONE. [Suspect]
     Active Substance: PREDNISONE
     Indication: HORMONE-REFRACTORY PROSTATE CANCER
     Route: 048
     Dates: start: 20130321
  2. AMLODIPINE BESYLATE. [Concomitant]
     Active Substance: AMLODIPINE BESYLATE
     Indication: HYPERTENSION
     Route: 065
     Dates: start: 2012
  3. VITAMIN D [Concomitant]
     Active Substance: CHOLECALCIFEROL
     Indication: SUPPLEMENTATION THERAPY
     Route: 065
     Dates: start: 2009
  4. ABIRATERONE ACETATE [Suspect]
     Active Substance: ABIRATERONE ACETATE
     Route: 048
  5. CALCIUM [Concomitant]
     Active Substance: CALCIUM
     Indication: SUPPLEMENTATION THERAPY
     Route: 065
     Dates: start: 20130610
  6. BRINZOLAMIDE [Concomitant]
     Active Substance: BRINZOLAMIDE
     Indication: GLAUCOMA
     Route: 065
     Dates: start: 2008
  7. LIPITOR [Concomitant]
     Active Substance: ATORVASTATIN CALCIUM
     Indication: HYPERCHOLESTEROLAEMIA
     Route: 065
     Dates: start: 20140512
  8. DORZOLAMIDE [Concomitant]
     Active Substance: DORZOLAMIDE
     Indication: GLAUCOMA
     Route: 065
     Dates: start: 20151230
  9. ABIRATERONE ACETATE [Suspect]
     Active Substance: ABIRATERONE ACETATE
     Indication: HORMONE-REFRACTORY PROSTATE CANCER
     Route: 048
     Dates: start: 20130321
  10. ZOLOFT [Concomitant]
     Active Substance: SERTRALINE HYDROCHLORIDE
     Indication: DEPRESSION
     Route: 065
     Dates: start: 1995
  11. COMBIGAN [Concomitant]
     Active Substance: BRIMONIDINE TARTRATE\TIMOLOL MALEATE
     Indication: GLAUCOMA
     Route: 065
     Dates: start: 2010
  12. BABY ASPIRIN [Concomitant]
     Active Substance: ASPIRIN
     Indication: CARDIAC DISORDER
     Route: 065
     Dates: start: 2013
  13. LISINOPRIL. [Concomitant]
     Active Substance: LISINOPRIL
     Indication: HYPERTENSION
     Route: 065
     Dates: start: 20151202

REACTIONS (1)
  - Syncope [Recovered/Resolved]

NARRATIVE: CASE EVENT DATE: 20161002
